FAERS Safety Report 5209215-6 (Version None)
Quarter: 2007Q1

REPORT INFORMATION
  Report Type: 
  Country: None (occurrence: None)
  Receive Date: 20070116
  Receipt Date: 20070105
  Transmission Date: 20070707
  Serious: Yes (Other)
  Sender: FDA-Public Use
  Company Number: FR-ROCHE-477640

PATIENT
  Sex: Male

DRUGS (5)
  1. PEGASYS [Suspect]
     Dosage: INJECTABLE SOLUTION.
     Route: 065
  2. COPEGUS [Suspect]
     Route: 065
  3. REYATAZ [Suspect]
     Route: 065
  4. COMBIVIR [Concomitant]
  5. NORVIR [Concomitant]

REACTIONS (1)
  - JAUNDICE ACHOLURIC [None]
